FAERS Safety Report 9874650 (Version 1)
Quarter: 2014Q1

REPORT INFORMATION
  Report Type: Spontaneous
  Country: RU (occurrence: RU)
  Receive Date: 20140206
  Receipt Date: 20140206
  Transmission Date: 20141002
  Serious: Yes (Hospitalization)
  Sender: FDA-Public Use
  Company Number: PHHY2014RU013739

PATIENT
  Age: 57 Year
  Sex: Male

DRUGS (1)
  1. ACLASTA [Suspect]
     Indication: OSTEOPOROSIS
     Dosage: UNK UKN, UNK
     Route: 042

REACTIONS (4)
  - Pleurisy [Recovered/Resolved]
  - Leukocyturia [Recovered/Resolved]
  - Pain [Recovered/Resolved]
  - Hyperthermia [Recovered/Resolved]
